FAERS Safety Report 15158667 (Version 1)
Quarter: 2018Q3

REPORT INFORMATION
  Report Type: Spontaneous
  Country: IT (occurrence: IT)
  Receive Date: 20180718
  Receipt Date: 20180718
  Transmission Date: 20181010
  Serious: Yes (Other)
  Sender: FDA-Public Use
  Company Number: IT-PFIZER INC-2018288032

PATIENT
  Age: 52 Year
  Sex: Female

DRUGS (3)
  1. PREGABALIN. [Suspect]
     Active Substance: PREGABALIN
     Indication: FIBROMYALGIA
     Dosage: UNK
     Dates: start: 20170424, end: 20170424
  2. TARGIN [Suspect]
     Active Substance: NALOXONE HYDROCHLORIDE\OXYCODONE HYDROCHLORIDE
     Indication: FIBROMYALGIA
     Dosage: 1 DF, TABLET
     Route: 048
     Dates: start: 20170424, end: 20170424
  3. RIVOTRIL [Suspect]
     Active Substance: CLONAZEPAM
     Indication: FIBROMYALGIA
     Dosage: 6 GTT, TOTAL
     Route: 048
     Dates: start: 20170424, end: 20170424

REACTIONS (4)
  - Fall [Unknown]
  - Hallucination [Recovering/Resolving]
  - Product use in unapproved indication [Unknown]
  - Vertigo [Recovering/Resolving]

NARRATIVE: CASE EVENT DATE: 20170424
